FAERS Safety Report 6272464-2 (Version None)
Quarter: 2009Q3

REPORT INFORMATION
  Report Type: 
  Country: None (occurrence: None)
  Receive Date: 20090713
  Receipt Date: 20090417
  Transmission Date: 20100115
  Serious: Yes (Other)
  Sender: FDA-Public Use
  Company Number: 628221

PATIENT
  Age: 76 Year
  Sex: Female

DRUGS (7)
  1. IBANDRONIC ACID (IBANDRONIC ACID) [Suspect]
     Indication: OSTEOPOROSIS
     Dosage: 150 MG
  2. ALTACE [Concomitant]
  3. NORVAC (AMLODIPINE BESYLATE) [Concomitant]
  4. LASIX [Concomitant]
  5. ASPIRIN [Concomitant]
  6. CALCIUM (CALCIUM) [Concomitant]
  7. VITAMIN D NOS (VITAMIN D NOS) [Concomitant]

REACTIONS (2)
  - CELLULITIS [None]
  - LOWER LIMB FRACTURE [None]
